FAERS Safety Report 16742032 (Version 1)
Quarter: 2019Q3

REPORT INFORMATION
  Report Type: Spontaneous
  Country: SK (occurrence: SK)
  Receive Date: 20190826
  Receipt Date: 20190826
  Transmission Date: 20191005
  Serious: Yes (Hospitalization, Other)
  Sender: FDA-Public Use
  Company Number: SK-JNJFOC-20190707103

PATIENT
  Age: 53 Year
  Sex: Female

DRUGS (5)
  1. LETROZOL [Suspect]
     Active Substance: LETROZOLE
     Indication: BREAST CANCER
     Dosage: UNK
     Route: 065
  2. CYCLOPHOSPHAMIDE. [Suspect]
     Active Substance: CYCLOPHOSPHAMIDE
     Indication: BREAST CANCER
     Dosage: UNK
     Route: 065
  3. DOCETAXEL. [Suspect]
     Active Substance: DOCETAXEL
     Indication: BREAST CANCER
     Dosage: UNK
     Route: 065
  4. CAELYX [Suspect]
     Active Substance: DOXORUBICIN HYDROCHLORIDE
     Indication: BREAST CANCER
     Dosage: UNK
     Route: 065
  5. TRASTUZUMAB. [Suspect]
     Active Substance: TRASTUZUMAB
     Indication: BREAST CANCER
     Dosage: UNK
     Route: 065

REACTIONS (13)
  - Cough [Recovering/Resolving]
  - Dyspnoea [Recovering/Resolving]
  - Pulmonary congestion [Recovering/Resolving]
  - Ventricular hypokinesia [Recovering/Resolving]
  - Spinal pain [Unknown]
  - Tachypnoea [Recovering/Resolving]
  - Congestive cardiomyopathy [Recovering/Resolving]
  - Fatigue [Recovering/Resolving]
  - Obesity [Unknown]
  - Oedema peripheral [Recovered/Resolved]
  - Orthopnoea [Recovering/Resolving]
  - Cardiac failure chronic [Recovering/Resolving]
  - Dizziness [Recovered/Resolved]

NARRATIVE: CASE EVENT DATE: 201601
